FAERS Safety Report 4918874-4 (Version None)
Quarter: 2006Q1

REPORT INFORMATION
  Report Type: 
  Country: None (occurrence: None)
  Receive Date: 20060222
  Receipt Date: 20060213
  Transmission Date: 20060701
  Serious: Yes (Hospitalization)
  Sender: FDA-Public Use
  Company Number: AU-ROCHE-436008

PATIENT
  Age: 64 Year
  Sex: Male

DRUGS (3)
  1. ROFERON-A [Suspect]
     Route: 058
     Dates: start: 20050125, end: 20050417
  2. CODEINE [Concomitant]
     Dosage: FORM REPORTED AS LIQUIDS.
     Route: 048
     Dates: start: 20050208
  3. ACETAMINOPHEN W/ CODEINE [Concomitant]
     Route: 048
     Dates: start: 20050415

REACTIONS (3)
  - DYSPNOEA [None]
  - ILL-DEFINED DISORDER [None]
  - PERICARDIAL EFFUSION [None]
